FAERS Safety Report 9447853 (Version 2)
Quarter: 2013Q3

REPORT INFORMATION
  Report Type: Spontaneous
  Country: FR (occurrence: FR)
  Receive Date: 20130808
  Receipt Date: 20130927
  Transmission Date: 20140515
  Serious: Yes (Other)
  Sender: FDA-Public Use
  Company Number: FR-BRISTOL-MYERS SQUIBB COMPANY-19177195

PATIENT
  Age: 86 Year
  Sex: Female

DRUGS (12)
  1. GLUCOPHAGE [Suspect]
     Indication: TYPE 2 DIABETES MELLITUS
     Route: 048
  2. PARACETAMOL [Suspect]
     Indication: PAIN
     Route: 048
  3. AMOXICILLIN [Suspect]
     Indication: URINARY TRACT INFECTION
     Dates: start: 20130529, end: 20130606
  4. PREVISCAN [Suspect]
     Indication: ATRIAL FIBRILLATION
     Dosage: UNK-04JUN13?08JUN13-10JUN13
     Route: 048
     Dates: end: 20130610
  5. BISOPROLOL FUMARATE [Suspect]
     Indication: HYPERTENSION
     Route: 048
  6. CANDESARTAN CILEXETIL [Suspect]
     Indication: HYPERTENSION
     Route: 048
  7. FUROSEMIDE [Suspect]
     Indication: HYPERTENSION
     Dosage: 08-JUN-2013
     Route: 048
  8. CORDARONE [Suspect]
     Indication: ARRHYTHMIA
  9. DOMPERIDONE [Suspect]
     Dosage: 1DF:3 TO 6 DF
     Route: 048
  10. LANSOPRAZOLE [Suspect]
     Route: 048
  11. CHLORHEXIDINE [Concomitant]
  12. DERMOVAL [Concomitant]

REACTIONS (4)
  - International normalised ratio increased [Recovered/Resolved]
  - Somnolence [Recovered/Resolved]
  - Hyponatraemia [Not Recovered/Not Resolved]
  - Hypokalaemia [Recovered/Resolved]
